FAERS Safety Report 7937728-2 (Version None)
Quarter: 2011Q4

REPORT INFORMATION
  Report Type: 
  Country: None (occurrence: None)
  Receive Date: 20111123
  Receipt Date: 20111116
  Transmission Date: 20120403
  Serious: Yes (Other)
  Sender: FDA-Public Use
  Company Number: PHHY2011AU101448

PATIENT
  Sex: Male

DRUGS (1)
  1. CLOZARIL [Suspect]
     Dosage: 200 MG

REACTIONS (6)
  - DYSPNOEA [None]
  - HEART RATE INCREASED [None]
  - TONSILLITIS [None]
  - INFLUENZA LIKE ILLNESS [None]
  - CHEST PAIN [None]
  - ELECTROCARDIOGRAM T WAVE INVERSION [None]
